FAERS Safety Report 9095556 (Version 1)
Quarter: 2013Q1

REPORT INFORMATION
  Report Type: Spontaneous
  Country: US (occurrence: None)
  Receive Date: 20130122
  Receipt Date: 20130122
  Transmission Date: 20140127
  Serious: Yes (Hospitalization)
  Sender: FDA-Public Use
  Company Number: UTC-027830

PATIENT
  Age: 75 Year
  Sex: Male
  Weight: 106.3 kg

DRUGS (2)
  1. TYVASO (6 MICROGRAM, AEROSOL FOR INHALATION) (TREPROSTINIL SODIUM) [Suspect]
     Indication: PULMONARY HYPERTENSION
     Dosage: (4 IN 1D)
     Route: 055
     Dates: start: 20121214
  2. ADCIRCA (TADALAFIL)(UNKNOWN) [Concomitant]

REACTIONS (3)
  - Dizziness [None]
  - Gait disturbance [None]
  - Flushing [None]
